FAERS Safety Report 21987233 (Version 1)
Quarter: 2023Q1

REPORT INFORMATION
  Report Type: Report from Study
  Country: CA (occurrence: CA)
  Receive Date: 20230213
  Receipt Date: 20230213
  Transmission Date: 20230418
  Serious: Yes (Other)
  Sender: FDA-Public Use
  Company Number: CA-JNJFOC-20211135325

PATIENT
  Age: 8 Year
  Sex: Female
  Weight: 37.6 kg

DRUGS (5)
  1. REMICADE [Suspect]
     Active Substance: INFLIXIMAB
     Indication: Juvenile idiopathic arthritis
     Dosage: 3.47 MG/KG.?ON 02-DEC-2021 PATIENT RECEIVED INFUSION
     Route: 042
     Dates: start: 20211118
  2. REMICADE [Suspect]
     Active Substance: INFLIXIMAB
     Route: 042
  3. REMICADE [Suspect]
     Active Substance: INFLIXIMAB
     Route: 042
  4. REMICADE [Suspect]
     Active Substance: INFLIXIMAB
     Route: 042
  5. REMICADE [Suspect]
     Active Substance: INFLIXIMAB
     Dosage: DOSE INCREASED
     Route: 042

REACTIONS (4)
  - Juvenile idiopathic arthritis [Unknown]
  - Pallor [Recovered/Resolved]
  - Fatigue [Recovered/Resolved]
  - Off label use [Unknown]

NARRATIVE: CASE EVENT DATE: 20211118
